FAERS Safety Report 6120884-9 (Version None)
Quarter: 2009Q1

REPORT INFORMATION
  Report Type: 
  Country: None (occurrence: None)
  Receive Date: 20090317
  Receipt Date: 20090112
  Transmission Date: 20090719
  Serious: No
  Sender: FDA-Public Use
  Company Number: US-BAYER-200910127BCC

PATIENT
  Age: 77 Year
  Sex: Female
  Weight: 95 kg

DRUGS (5)
  1. ALEVE [Suspect]
     Indication: BACK PAIN
     Dates: start: 20080101
  2. HIGH BLOOD PRESSURE MEDICATION [Concomitant]
  3. HIGH CHOLESTEROL MEDICATION [Concomitant]
  4. PREMPRO [Concomitant]
  5. SINGULAIR [Concomitant]

REACTIONS (1)
  - ABDOMINAL PAIN UPPER [None]
